FAERS Safety Report 7372529-8 (Version None)
Quarter: 2011Q1

REPORT INFORMATION
  Report Type: 
  Country: None (occurrence: None)
  Receive Date: 20110315
  Receipt Date: 20110301
  Transmission Date: 20110831
  Serious: Yes (Hospitalization)
  Sender: FDA-Public Use
  Company Number: 2011SP000716

PATIENT
  Age: 77 Year
  Sex: Female

DRUGS (10)
  1. GASTER D [Concomitant]
  2. ALVESCO [Suspect]
     Indication: ASTHMA
     Dosage: 400 UG;QD;INHALATION
     Route: 055
     Dates: start: 20090319
  3. AMLODIN [Concomitant]
  4. SLOW-K [Concomitant]
  5. THEO-DUR [Concomitant]
  6. DIART [Concomitant]
  7. ASPIRIN [Concomitant]
  8. PURSENNID [Concomitant]
  9. KLARICID [Concomitant]
  10. ALDACTONE [Concomitant]

REACTIONS (3)
  - FEMORAL NECK FRACTURE [None]
  - CARDIAC FAILURE [None]
  - GENERAL PHYSICAL CONDITION ABNORMAL [None]
